FAERS Safety Report 15642098 (Version 12)
Quarter: 2024Q4

REPORT INFORMATION
  Report Type: Report from Study
  Country: DE (occurrence: DE)
  Receive Date: 20181121
  Receipt Date: 20241129
  Transmission Date: 20250115
  Serious: Yes (Life-Threatening, Hospitalization, Other)
  Sender: BRISTOL-MYERS SQUIBB COMPANY
  Company Number: DE-BRISTOL-MYERS SQUIBB COMPANY-BMS-2018-109252

PATIENT
  Age: 51 Year
  Sex: Male

DRUGS (6)
  1. NIVOLUMAB [Suspect]
     Active Substance: NIVOLUMAB
     Indication: Malignant melanoma
     Dosage: 124 MILLIGRAM
     Route: 042
     Dates: start: 20180119, end: 20180323
  2. NIVOLUMAB [Suspect]
     Active Substance: NIVOLUMAB
     Dosage: 369 MILLIGRAM, Q2WK
     Route: 042
     Dates: start: 20180417, end: 20180502
  3. IPILIMUMAB [Suspect]
     Active Substance: IPILIMUMAB
     Indication: Malignant melanoma
     Dosage: 372 MILLIGRAM, Q3WK
     Route: 042
     Dates: start: 20180119, end: 20180323
  4. TEBENTAFUSP [Suspect]
     Active Substance: TEBENTAFUSP
     Indication: Malignant melanoma
     Dosage: UNK
  5. DURVALUMAB [Concomitant]
     Active Substance: DURVALUMAB
     Indication: Product used for unknown indication
  6. DURVALUMAB [Concomitant]
     Active Substance: DURVALUMAB
     Dosage: UNK
     Dates: start: 20180523, end: 20200211

REACTIONS (10)
  - Malignant neoplasm progression [Recovered/Resolved]
  - Cytokine release syndrome [Recovered/Resolved]
  - Erythema multiforme [Recovered/Resolved]
  - Tumour pain [Recovered/Resolved]
  - Fatigue [Recovered/Resolved]
  - Skin hyperpigmentation [Recovered/Resolved]
  - Skin hypopigmentation [Recovered/Resolved]
  - Photosensitivity reaction [Recovered/Resolved]
  - Hyperhidrosis [Recovered/Resolved]
  - Dysgeusia [Recovered/Resolved]

NARRATIVE: CASE EVENT DATE: 20180120
